FAERS Safety Report 5763636-1 (Version None)
Quarter: 2008Q2

REPORT INFORMATION
  Report Type: 
  Country: None (occurrence: None)
  Receive Date: 20080610
  Receipt Date: 20080129
  Transmission Date: 20081010
  Serious: No
  Sender: FDA-Public Use
  Company Number: US-BAYER-200813043NA

PATIENT
  Age: 29 Year
  Sex: Female
  Weight: 70 kg

DRUGS (3)
  1. MIRENA [Suspect]
     Indication: CONTRACEPTION
     Route: 015
     Dates: start: 20080109
  2. NEXIUM [Concomitant]
     Indication: GASTROOESOPHAGEAL REFLUX DISEASE
  3. VERAPAMIL [Concomitant]
     Indication: HEART RATE INCREASED

REACTIONS (4)
  - DIZZINESS [None]
  - HEADACHE [None]
  - HYPERTENSION [None]
  - PROCEDURAL PAIN [None]
